FAERS Safety Report 9582187 (Version 1)
Quarter: 2013Q4

REPORT INFORMATION
  Report Type: Spontaneous
  Country: US (occurrence: US)
  Receive Date: 20131002
  Receipt Date: 20131002
  Transmission Date: 20140711
  Serious: Yes (Other)
  Sender: FDA-Public Use
  Company Number: US-MYLANLABS-2013S1021306

PATIENT
  Age: 9 Year
  Sex: Male
  Weight: 39 kg

DRUGS (4)
  1. DEXMETHYLPHENIDATE HYDROCHLORIDE [Suspect]
     Dosage: 5MG DAILY
     Route: 065
  2. GUANFACINE [Suspect]
     Dosage: 1MG
     Route: 065
  3. GUANFACINE [Suspect]
     Dosage: 2MG
     Route: 065
  4. SALBUTAMOL [Concomitant]
     Indication: ASTHMA
     Dosage: AS NEEDED
     Route: 065

REACTIONS (4)
  - Anxiety [Unknown]
  - Irritability [Unknown]
  - Disinhibition [Unknown]
  - Depressed mood [Unknown]
